FAERS Safety Report 5311208-5 (Version None)
Quarter: 2007Q2

REPORT INFORMATION
  Report Type: 
  Country: None (occurrence: None)
  Receive Date: 20070430
  Receipt Date: 20070420
  Transmission Date: 20071010
  Serious: Yes (Death)
  Sender: FDA-Public Use
  Company Number: US-AMGEN-US221045

PATIENT
  Age: 59 Year
  Sex: Female

DRUGS (1)
  1. PROCRIT [Suspect]
     Indication: ANAEMIA
     Route: 065
     Dates: start: 20051001, end: 20060101

REACTIONS (3)
  - ASTHENIA [None]
  - DEATH [None]
  - RENAL FAILURE [None]
